FAERS Safety Report 4527233-8 (Version None)
Quarter: 2004Q4

REPORT INFORMATION
  Report Type: 
  Country: None (occurrence: None)
  Receive Date: 20041215
  Receipt Date: 20041203
  Transmission Date: 20050328
  Serious: Yes (Death, Hospitalization)
  Sender: FDA-Public Use
  Company Number: DE-JNJFOC-20041201509

PATIENT
  Weight: 80 kg

DRUGS (28)
  1. BLINDED; ABCIXIMA [Suspect]
     Route: 042
  2. BLINDED; ABCIXIMA [Suspect]
     Indication: MYOCARDIAL INFARCTION
     Route: 042
  3. HEPARIN [Concomitant]
  4. CLOPIDOGREL [Concomitant]
  5. ACETYLSALICYLIC ACID [Concomitant]
  6. METOPROLOL [Concomitant]
     Indication: HYPERTENSION
  7. MORPHIUM [Concomitant]
     Indication: PAIN
     Route: 042
  8. CAPTOPRIL [Concomitant]
  9. OXAZEPAM [Concomitant]
  10. FLUVASTATIN [Concomitant]
  11. POTASSIUM [Concomitant]
  12. DOPAMIN [Concomitant]
  13. SPIRONOLACTONE [Concomitant]
  14. SODIUM CHLORIDE [Concomitant]
  15. CARVEDIOL [Concomitant]
  16. LEPIRUDIN [Concomitant]
  17. TERBUTALINE [Concomitant]
  18. PREDNISOLONE [Concomitant]
  19. IPRATROPIUM BROMIDE [Concomitant]
  20. LENTEROL [Concomitant]
  21. FENOTEROL [Concomitant]
  22. NITROGLYCERIN [Concomitant]
  23. FUROSEMIDE [Concomitant]
  24. DIAZEPAM [Concomitant]
  25. GLIMEPIRIDE [Concomitant]
     Indication: DIABETES MELLITUS
  26. ALLOPURINOL [Concomitant]
  27. FELODIPINE [Concomitant]
     Indication: HYPERTENSION
  28. DIAZEPAM [Concomitant]

REACTIONS (13)
  - CARDIAC ANEURYSM [None]
  - CARDIAC TAMPONADE [None]
  - CARDIOGENIC SHOCK [None]
  - ELECTROMECHANICAL DISSOCIATION [None]
  - INTERVENTRICULAR SEPTUM RUPTURE [None]
  - INTRACARDIAC THROMBUS [None]
  - LEFT VENTRICULAR FAILURE [None]
  - MYOCARDIAL HAEMORRHAGE [None]
  - MYOCARDIAL RUPTURE [None]
  - PERICARDIAL HAEMORRHAGE [None]
  - PNEUMONIA [None]
  - THROMBOCYTOPENIA [None]
  - VENTRICULAR DYSKINESIA [None]
